FAERS Safety Report 6440467-0 (Version None)
Quarter: 2009Q4

REPORT INFORMATION
  Report Type: 
  Country: None (occurrence: None)
  Receive Date: 20091113
  Receipt Date: 20091105
  Transmission Date: 20100525
  Serious: Yes (Hospitalization)
  Sender: FDA-Public Use
  Company Number: JP-ABBOTT-09P-087-0592909-00

PATIENT
  Sex: Male
  Weight: 90 kg

DRUGS (8)
  1. KLARICID [Suspect]
     Indication: PYREXIA
     Route: 048
     Dates: start: 20081209, end: 20081210
  2. KLARICID [Suspect]
     Indication: PRODUCTIVE COUGH
  3. CEFTRIAXONE [Suspect]
     Indication: PYREXIA
     Route: 041
     Dates: start: 20081209, end: 20081210
  4. CEFTRIAXONE [Suspect]
     Indication: PRODUCTIVE COUGH
  5. CEFTRIAXONE [Suspect]
     Indication: BRONCHITIS
  6. OVER-THE-COUNTER GENERAL COLD MEDICINE CONTAINING PARACETAMOL [Suspect]
     Indication: RHINORRHOEA
     Route: 048
     Dates: start: 20081209, end: 20081210
  7. OVER-THE-COUNTER GENERAL COLD MEDICINE CONTAINING PARACETAMOL [Suspect]
     Indication: OROPHARYNGEAL PAIN
  8. OVER-THE-COUNTER GENERAL COLD MEDICINE CONTAINING PARACETAMOL [Suspect]
     Indication: PYREXIA

REACTIONS (1)
  - EOSINOPHILIC PNEUMONIA [None]
